FAERS Safety Report 15458251 (Version 1)
Quarter: 2018Q3

REPORT INFORMATION
  Report Type: Spontaneous
  Country: US (occurrence: US)
  Receive Date: 20180928
  Receipt Date: 20180928
  Transmission Date: 20181010
  Serious: No
  Sender: FDA-Public Use
  Company Number: None

PATIENT
  Age: 70 Year
  Sex: Male
  Weight: 59.7 kg

DRUGS (1)
  1. AMBISOME [Suspect]
     Active Substance: AMPHOTERICIN B
     Indication: FUNGAL INFECTION
     Dosage: ?          OTHER FREQUENCY:EVERY M/W/F;?
     Route: 042
     Dates: start: 20180909

REACTIONS (6)
  - Skin mass [None]
  - Rash [None]
  - Endophthalmitis [None]
  - Pruritus generalised [None]
  - Chorioretinitis [None]
  - Hypomagnesaemia [None]

NARRATIVE: CASE EVENT DATE: 20180926
